FAERS Safety Report 4871442-5 (Version None)
Quarter: 2005Q4

REPORT INFORMATION
  Report Type: 
  Country: None (occurrence: None)
  Receive Date: 20051229
  Receipt Date: 20051220
  Transmission Date: 20060501
  Serious: Yes (Hospitalization)
  Sender: FDA-Public Use
  Company Number: 2005BI022450

PATIENT
  Age: 40 Year
  Sex: Female

DRUGS (2)
  1. AVONEX [Suspect]
     Indication: MULTIPLE SCLEROSIS
     Dosage: 30 UG; QW; IM
     Route: 030
     Dates: start: 20000301, end: 20050501
  2. AVONEX [Suspect]
     Indication: MULTIPLE SCLEROSIS
     Dosage: 30 UG; QW; IM
     Route: 030
     Dates: start: 20050901

REACTIONS (6)
  - CARDIAC ARREST [None]
  - CHOLECYSTECTOMY [None]
  - HAEMORRHAGE [None]
  - IATROGENIC INJURY [None]
  - PROCEDURAL COMPLICATION [None]
  - VASCULAR INJURY [None]
